FAERS Safety Report 5205058-8 (Version None)
Quarter: 2007Q1

REPORT INFORMATION
  Report Type: 
  Country: None (occurrence: None)
  Receive Date: 20070110
  Receipt Date: 20061016
  Transmission Date: 20070707
  Serious: No
  Sender: FDA-Public Use
  Company Number: US-BRISTOL-MYERS SQUIBB COMPANY-13541859

PATIENT
  Age: 53 Year
  Sex: Male
  Weight: 106 kg

DRUGS (3)
  1. ABILIFY [Suspect]
     Indication: BIPOLAR DISORDER
     Dates: start: 20061005
  2. ALBUTEROL [Concomitant]
  3. PREDNISONE TAB [Concomitant]

REACTIONS (3)
  - DRY MOUTH [None]
  - DYSPNOEA [None]
  - JOINT SWELLING [None]
